FAERS Safety Report 10086121 (Version 1)
Quarter: 2014Q2

REPORT INFORMATION
  Report Type: Spontaneous
  Country: IT (occurrence: IT)
  Receive Date: 20140418
  Receipt Date: 20140418
  Transmission Date: 20141212
  Serious: Yes (Hospitalization, Other)
  Sender: FDA-Public Use
  Company Number: IT-UCBSA-118302

PATIENT
  Age: 54 Year
  Sex: Female

DRUGS (3)
  1. KEPPRA [Suspect]
     Route: 048
     Dates: start: 20140317, end: 20140317
  2. RIVOTRIL [Suspect]
     Route: 048
     Dates: start: 20140317, end: 20140317
  3. TELMISARTAN [Suspect]
     Route: 048
     Dates: start: 20140317, end: 20140317

REACTIONS (5)
  - Psychomotor hyperactivity [Unknown]
  - Somnolence [Unknown]
  - Suicide attempt [Unknown]
  - Drug abuse [Unknown]
  - Overdose [Unknown]
